FAERS Safety Report 6805066-7 (Version None)
Quarter: 2010Q2

REPORT INFORMATION
  Report Type: 
  Country: None (occurrence: None)
  Receive Date: 20100628
  Receipt Date: 20070831
  Transmission Date: 20101027
  Serious: No
  Sender: FDA-Public Use
  Company Number: US-PFIZER INC-2007073481

PATIENT
  Sex: Male
  Weight: 104.5 kg

DRUGS (8)
  1. XALATAN [Suspect]
     Route: 031
  2. MELOXICAM [Concomitant]
  3. FUROSEMIDE [Concomitant]
  4. LOPRESSOR [Concomitant]
  5. TEMAZEPAM [Concomitant]
  6. PRINZIDE [Concomitant]
  7. PRAVACHOL [Concomitant]
  8. ARICEPT [Concomitant]

REACTIONS (1)
  - EYE IRRITATION [None]
